FAERS Safety Report 15559830 (Version 1)
Quarter: 2018Q4

REPORT INFORMATION
  Report Type: Report from Study
  Country: ZA (occurrence: ZA)
  Receive Date: 20181029
  Receipt Date: 20181029
  Transmission Date: 20190205
  Serious: Yes (Hospitalization)
  Sender: FDA-Public Use
  Company Number: ZA-ROCHE-2206737

PATIENT
  Age: 65 Year
  Sex: Female

DRUGS (1)
  1. ACTEMRA [Suspect]
     Active Substance: TOCILIZUMAB
     Indication: RHEUMATOID ARTHRITIS
     Route: 058
     Dates: start: 20171114

REACTIONS (2)
  - Drug ineffective [Unknown]
  - Pain [Unknown]

NARRATIVE: CASE EVENT DATE: 201712
